FAERS Safety Report 17064450 (Version 3)
Quarter: 2020Q2

REPORT INFORMATION
  Report Type: Spontaneous
  Country: US (occurrence: US)
  Receive Date: 20191122
  Receipt Date: 20200416
  Transmission Date: 20200713
  Serious: Yes (Death)
  Sender: FDA-Public Use
  Company Number: US-PFIZER INC-2019502951

PATIENT
  Age: 68 Year
  Sex: Female

DRUGS (4)
  1. TYVASO [Concomitant]
     Active Substance: TREPROSTINIL
     Indication: CARDIAC DISORDER
     Dosage: UNK
  2. REVATIO [Suspect]
     Active Substance: SILDENAFIL CITRATE
     Indication: HYPERTENSION
     Dosage: 80 MG, 3X/DAY (20 MG TABLET, TAKE 4 TABLETS (80MG TOTAL BY MOUTH 3 TIMES A DAY))
     Route: 048
  3. REVATIO [Suspect]
     Active Substance: SILDENAFIL CITRATE
     Indication: PULMONARY ARTERIAL HYPERTENSION
  4. REVATIO [Suspect]
     Active Substance: SILDENAFIL CITRATE
     Indication: CARDIAC DISORDER

REACTIONS (4)
  - Death [Fatal]
  - Condition aggravated [Unknown]
  - Off label use [Unknown]
  - Right ventricular dilatation [Unknown]

NARRATIVE: CASE EVENT DATE: 20200411
